FAERS Safety Report 22183056 (Version 1)
Quarter: 2023Q2

REPORT INFORMATION
  Report Type: Spontaneous
  Country: US (occurrence: US)
  Receive Date: 20230406
  Receipt Date: 20230406
  Transmission Date: 20230721
  Serious: Yes (Hospitalization)
  Sender: FDA-Public Use
  Company Number: US-Evolus, Inc.-2022EV000181

PATIENT
  Age: 31 Year
  Sex: Female

DRUGS (1)
  1. JEUVEAU [Suspect]
     Active Substance: PRABOTULINUMTOXINA-XVFS
     Indication: Off label use
     Dates: start: 20211229, end: 20211229

REACTIONS (2)
  - Anaphylactic reaction [Recovered/Resolved]
  - Off label use [Unknown]

NARRATIVE: CASE EVENT DATE: 20211229
